FAERS Safety Report 8984244 (Version 1)
Quarter: 2012Q4

REPORT INFORMATION
  Report Type: Report from Study
  Country: CA (occurrence: CA)
  Receive Date: 20121226
  Receipt Date: 20121226
  Transmission Date: 20130627
  Serious: Yes (Other)
  Sender: FDA-Public Use
  Company Number: CA-JNJFOC-20121208800

PATIENT
  Sex: Female

DRUGS (6)
  1. REMICADE [Suspect]
     Indication: CROHN^S DISEASE
     Route: 042
  2. DILANTIN [Concomitant]
     Indication: CONVULSION
     Route: 065
  3. ELMIRON [Concomitant]
     Indication: CYSTITIS
     Route: 065
  4. SALOFALK [Concomitant]
     Route: 065
  5. NEXIUM [Concomitant]
     Indication: GASTRIC DISORDER
     Route: 065
  6. CEFUROXIME [Concomitant]
     Indication: CYSTITIS
     Route: 065

REACTIONS (7)
  - Weight decreased [Unknown]
  - White blood cell count decreased [Unknown]
  - Infusion related reaction [Unknown]
  - Cystitis [Unknown]
  - Headache [Unknown]
  - Aphagia [Unknown]
  - Fatigue [Unknown]
